FAERS Safety Report 4968182-0 (Version None)
Quarter: 2006Q2

REPORT INFORMATION
  Report Type: 
  Country: None (occurrence: None)
  Receive Date: 20060405
  Receipt Date: 20060321
  Transmission Date: 20061013
  Serious: Yes (Death)
  Sender: FDA-Public Use
  Company Number: 2006-00636

PATIENT
  Sex: Female

DRUGS (1)
  1. VELCADE [Suspect]
     Dosage: INTRAVENOUS
     Route: 042

REACTIONS (1)
  - B-CELL LYMPHOMA [None]
